FAERS Safety Report 14260891 (Version 2)
Quarter: 2017Q4

REPORT INFORMATION
  Report Type: Spontaneous
  Country: US (occurrence: US)
  Receive Date: 20171207
  Receipt Date: 20171220
  Transmission Date: 20180321
  Serious: Yes (Hospitalization, Other)
  Sender: FDA-Public Use
  Company Number: US-JAZZ-2017-US-016225

PATIENT
  Age: 51 Year
  Sex: Male

DRUGS (4)
  1. XYREM [Suspect]
     Active Substance: SODIUM OXYBATE
     Indication: PRODUCT USED FOR UNKNOWN INDICATION
     Route: 048
  2. LITHIUM CARBONATE. [Suspect]
     Active Substance: LITHIUM CARBONATE
     Indication: PRODUCT USED FOR UNKNOWN INDICATION
     Dosage: 300 MG, QD
  3. TRANYLCYPROMINE SULFATE. [Suspect]
     Active Substance: TRANYLCYPROMINE SULFATE
     Indication: PRODUCT USED FOR UNKNOWN INDICATION
  4. CLONAZEPAM. [Suspect]
     Active Substance: CLONAZEPAM
     Indication: PRODUCT USED FOR UNKNOWN INDICATION

REACTIONS (13)
  - Mental disorder [Unknown]
  - Blood glucose decreased [Recovering/Resolving]
  - Anxiety disorder [Unknown]
  - Agitation [Recovered/Resolved]
  - Urinary retention [Recovered/Resolved]
  - Coma [Recovered/Resolved]
  - Blood pressure decreased [Recovering/Resolving]
  - Confusional state [Recovered/Resolved]
  - Irritability [Recovered/Resolved]
  - Pyrexia [Recovered/Resolved]
  - Pupils unequal [Unknown]
  - Somnolence [Unknown]
  - Muscle twitching [Unknown]

NARRATIVE: CASE EVENT DATE: 201711
